FAERS Safety Report 4595005-4 (Version None)
Quarter: 2005Q1

REPORT INFORMATION
  Report Type: 
  Country: None (occurrence: None)
  Receive Date: 20050225
  Receipt Date: 20050209
  Transmission Date: 20050727
  Serious: Yes (Hospitalization, Other)
  Sender: FDA-Public Use
  Company Number: 200510322BCC

PATIENT
  Age: 37 Year
  Sex: Male
  Weight: 68.0396 kg

DRUGS (9)
  1. ASPIRIN [Suspect]
     Dosage: SEE IMAGE
     Dates: start: 20030801, end: 20030802
  2. ASPIRIN [Suspect]
     Dosage: SEE IMAGE
     Dates: start: 19990330
  3. ASPIRIN [Suspect]
     Dosage: SEE IMAGE
     Dates: start: 20030801
  4. ALEVE [Suspect]
     Dosage: PRN
  5. HIGH BLOOD PRESSURE PILL (NOS) [Concomitant]
  6. PREDNISONE [Concomitant]
  7. FLEXERIL [Concomitant]
  8. MOTRIN [Concomitant]
  9. AMOXICILLIN [Concomitant]

REACTIONS (21)
  - BACK PAIN [None]
  - CARDIAC ARREST [None]
  - CHEST PAIN [None]
  - CONVULSION [None]
  - CORONARY ARTERY OCCLUSION [None]
  - CUTANEOUS LUPUS ERYTHEMATOSUS [None]
  - DEPRESSION [None]
  - FLANK PAIN [None]
  - HEADACHE [None]
  - HIGH DENSITY LIPOPROTEIN DECREASED [None]
  - HYPOAESTHESIA [None]
  - INSOMNIA [None]
  - LOBAR PNEUMONIA [None]
  - LUPUS NEPHRITIS [None]
  - MYOCARDIAL INFARCTION [None]
  - OSTEOPENIA [None]
  - PAIN IN EXTREMITY [None]
  - PARAESTHESIA [None]
  - RASH [None]
  - SYSTEMIC LUPUS ERYTHEMATOSUS [None]
  - VENTRICULAR FIBRILLATION [None]
